FAERS Safety Report 22390046 (Version 1)
Quarter: 2023Q2

REPORT INFORMATION
  Report Type: Spontaneous
  Country: FR (occurrence: FR)
  Receive Date: 20230531
  Receipt Date: 20230531
  Transmission Date: 20230722
  Serious: Yes (Other)
  Sender: FDA-Public Use
  Company Number: None

PATIENT
  Age: 39 Year
  Sex: Male

DRUGS (4)
  1. GABAPENTIN [Suspect]
     Active Substance: GABAPENTIN
     Indication: Product used for unknown indication
     Dosage: 4 DOSAGE FORM, TOTAL (4 TABLETS IN A SINGLE DOSE)
     Route: 048
     Dates: start: 20230419, end: 20230419
  2. GABAPENTIN [Suspect]
     Active Substance: GABAPENTIN
     Dosage: CHRONIC TREATMENT
     Route: 048
     Dates: start: 2023
  3. COCAINE [Suspect]
     Active Substance: COCAINE
     Indication: Product used for unknown indication
     Dosage: 0.2 GRAM, QD
     Route: 045
     Dates: start: 20230419, end: 20230419
  4. CANNABIS SATIVA SUBSP. INDICA TOP [Concomitant]
     Active Substance: CANNABIS SATIVA SUBSP. INDICA TOP
     Dosage: UNK
     Route: 065
     Dates: start: 2023

REACTIONS (4)
  - Drug abuse [Unknown]
  - Dysarthria [Recovered/Resolved]
  - Paraesthesia [Recovered/Resolved]
  - Agitation [Recovered/Resolved]

NARRATIVE: CASE EVENT DATE: 20230419
